FAERS Safety Report 25647098 (Version 1)
Quarter: 2025Q3

REPORT INFORMATION
  Report Type: Report from Study
  Country: CA (occurrence: CA)
  Receive Date: 20250806
  Receipt Date: 20250806
  Transmission Date: 20251021
  Serious: Yes (Other)
  Sender: GLAXOSMITHKLINE
  Company Number: CA-GSK-CA2025074218

PATIENT
  Age: 81 Year
  Sex: Female

DRUGS (1)
  1. MOMELOTINIB [Suspect]
     Active Substance: MOMELOTINIB
     Indication: Myelofibrosis
     Dosage: 200 MG, QD

REACTIONS (5)
  - Thrombocytopenia [Recovered/Resolved]
  - Dizziness [Unknown]
  - Hypotension [Unknown]
  - Adverse drug reaction [Unknown]
  - Influenza like illness [Unknown]

NARRATIVE: CASE EVENT DATE: 20250613
